FAERS Safety Report 5630717-2 (Version None)
Quarter: 2008Q1

REPORT INFORMATION
  Report Type: 
  Country: None (occurrence: None)
  Receive Date: 20080219
  Receipt Date: 20080213
  Transmission Date: 20080703
  Serious: Yes (Other)
  Sender: FDA-Public Use
  Company Number: US-JNJFOC-20080203350

PATIENT
  Sex: Female
  Weight: 56.7 kg

DRUGS (8)
  1. FENTANYL TRANSDERMAL SYSTEM [Suspect]
     Route: 062
  2. FENTANYL TRANSDERMAL SYSTEM [Suspect]
     Indication: OSTEOARTHRITIS
     Route: 062
  3. SEROQUEL [Concomitant]
     Indication: BIPOLAR DISORDER
     Route: 048
  4. LAMICTAL [Concomitant]
     Indication: BIPOLAR DISORDER
     Route: 048
  5. THALLIUM [Concomitant]
     Indication: BIPOLAR DISORDER
     Route: 048
  6. MYSOLINE [Concomitant]
     Indication: BIPOLAR DISORDER
     Route: 048
  7. SYNTHROID [Concomitant]
     Indication: BIPOLAR DISORDER
     Route: 048
  8. SALICYLATE [Concomitant]
     Indication: OSTEOARTHRITIS
     Route: 048

REACTIONS (3)
  - ATAXIA [None]
  - GAIT DISTURBANCE [None]
  - SEDATION [None]
